FAERS Safety Report 26083425 (Version 2)
Quarter: 2025Q4

REPORT INFORMATION
  Report Type: Spontaneous
  Country: EU (occurrence: EU)
  Receive Date: 20251124
  Receipt Date: 20251201
  Transmission Date: 20260117
  Serious: No
  Sender: NOVARTIS
  Company Number: EU-002147023-NVSC2025AT180442

PATIENT
  Age: 14 Year
  Sex: Male

DRUGS (2)
  1. DABRAFENIB [Suspect]
     Active Substance: DABRAFENIB
     Indication: Metastatic malignant melanoma
     Dosage: 300 MG, QD
     Route: 065
  2. TRAMETINIB [Suspect]
     Active Substance: TRAMETINIB
     Indication: Metastatic malignant melanoma
     Dosage: 2 MG, QD
     Route: 065

REACTIONS (2)
  - Rash morbilliform [Unknown]
  - Pyrexia [Unknown]
